FAERS Safety Report 21077063 (Version 3)
Quarter: 2022Q3

REPORT INFORMATION
  Report Type: Spontaneous
  Country: US (occurrence: US)
  Receive Date: 20220713
  Receipt Date: 20220819
  Transmission Date: 20221027
  Serious: No
  Sender: FDA-Public Use
  Company Number: US-PFIZER INC-202200944389

PATIENT
  Age: 69 Year
  Sex: Male

DRUGS (1)
  1. PAXLOVID [Suspect]
     Active Substance: NIRMATRELVIR\RITONAVIR
     Indication: COVID-19 treatment
     Dosage: UNK
     Dates: start: 20220629, end: 20220704

REACTIONS (8)
  - Cough [Recovered/Resolved]
  - Nasal congestion [Recovered/Resolved]
  - Rhinorrhoea [Recovered/Resolved]
  - Feeling abnormal [Recovered/Resolved]
  - Sneezing [Unknown]
  - Sinusitis [Unknown]
  - COVID-19 [Unknown]
  - Disease recurrence [Unknown]

NARRATIVE: CASE EVENT DATE: 20220707
